FAERS Safety Report 9494406 (Version 1)
Quarter: 2013Q3

REPORT INFORMATION
  Report Type: Spontaneous
  Country: US (occurrence: None)
  Receive Date: 20130830
  Receipt Date: 20130830
  Transmission Date: 20140515
  Serious: Yes (Death)
  Sender: FDA-Public Use
  Company Number: None

PATIENT
  Age: 64 Year
  Sex: Female

DRUGS (14)
  1. REVLIMID [Suspect]
     Indication: PLASMA CELL MYELOMA
     Dosage: 25 MG DAILY X 21/28 DAYS BY MOUTH
     Route: 048
     Dates: start: 201308
  2. DEXAMETHASONE [Concomitant]
  3. ASA [Concomitant]
  4. ATORVASTATIN [Concomitant]
  5. LISINOPRIL [Concomitant]
  6. HCTZ [Concomitant]
  7. KCL [Concomitant]
  8. LEVOTHYROXINE [Concomitant]
  9. TOPIRAMATE [Concomitant]
  10. IBUPROFEN [Concomitant]
  11. MOMETASONE/FORMOTEROL HFA [Concomitant]
  12. ALBUTEROL HFA [Concomitant]
  13. FLUTICASONE NS [Concomitant]
  14. DICLOFENAC GEL [Concomitant]

REACTIONS (1)
  - Cerebrovascular accident [None]
